FAERS Safety Report 7903945-0 (Version None)
Quarter: 2011Q4

REPORT INFORMATION
  Report Type: 
  Country: None (occurrence: None)
  Receive Date: 20111109
  Receipt Date: 20111010
  Transmission Date: 20120403
  Serious: No
  Sender: FDA-Public Use
  Company Number: US-BAYER-2011-102788

PATIENT
  Age: 77 Year
  Sex: Female

DRUGS (6)
  1. CETIRIZINE HCL [Concomitant]
  2. LISINOPRIL AND HYDROCHLOROTHIAZIDE [Concomitant]
  3. NAPROXEN SODIUM [Suspect]
  4. CARISOPRODOL [Concomitant]
  5. BONIVA [Suspect]
     Indication: OSTEOPOROSIS
     Dosage: 150 MG, UNK
     Dates: start: 20111010
  6. LANSOPRAZOLE [Concomitant]

REACTIONS (1)
  - NO ADVERSE EVENT [None]
